FAERS Safety Report 5934090-1 (Version None)
Quarter: 2008Q4

REPORT INFORMATION
  Report Type: 
  Country: None (occurrence: None)
  Receive Date: 20081028
  Receipt Date: 20081028
  Transmission Date: 20090506
  Serious: Yes (Hospitalization)
  Sender: FDA-Public Use
  Company Number: None

PATIENT
  Age: 68 Year
  Sex: Male

DRUGS (1)
  1. MOXIFLOXACIN HCL [Suspect]
     Indication: UPPER RESPIRATORY TRACT INFECTION
     Dosage: 400 MG EVERYDAY PO
     Route: 048
     Dates: start: 20081017, end: 20081023

REACTIONS (11)
  - ANGIOEDEMA [None]
  - BLOOD PRESSURE SYSTOLIC INCREASED [None]
  - DRUG HYPERSENSITIVITY [None]
  - GLOSSODYNIA [None]
  - HEART RATE DECREASED [None]
  - HYPERTENSION [None]
  - INSOMNIA [None]
  - MUCOSAL DISCOLOURATION [None]
  - POST-TRAUMATIC STRESS DISORDER [None]
  - PRODUCTIVE COUGH [None]
  - STRESS [None]
